FAERS Safety Report 7740600-4 (Version None)
Quarter: 2011Q3

REPORT INFORMATION
  Report Type: 
  Country: None (occurrence: None)
  Receive Date: 20110909
  Receipt Date: 20110831
  Transmission Date: 20111222
  Serious: Yes (Hospitalization, Other)
  Sender: FDA-Public Use
  Company Number: US-BRISTOL-MYERS SQUIBB COMPANY-16042160

PATIENT
  Age: 66 Year
  Sex: Female
  Weight: 57 kg

DRUGS (3)
  1. PACLITAXEL [Suspect]
     Indication: NON-SMALL CELL LUNG CANCER
     Dosage: LAST DOSE:17FEB10(243MG)
     Route: 042
     Dates: start: 20100105
  2. CARBOPLATIN [Suspect]
     Indication: NON-SMALL CELL LUNG CANCER
     Dosage: AUC=6,LAST DOSE:17FEB10(289.UNIT NOT SPECIFIED)
     Route: 042
     Dates: start: 20100105
  3. CETUXIMAB [Suspect]
     Indication: NON-SMALL CELL LUNG CANCER
     Dosage: LAST DOSE:23FEB10(810MG) LOADING DOSE:400MG/M2
     Route: 042
     Dates: start: 20100105

REACTIONS (8)
  - PLATELET COUNT DECREASED [None]
  - ANAEMIA [None]
  - DEHYDRATION [None]
  - OROPHARYNGEAL PAIN [None]
  - HYPOTENSION [None]
  - NEUTROPHIL COUNT DECREASED [None]
  - VOMITING [None]
  - NAUSEA [None]
